FAERS Safety Report 5495138-4 (Version None)
Quarter: 2007Q4

REPORT INFORMATION
  Report Type: 
  Country: None (occurrence: None)
  Receive Date: 20071024
  Receipt Date: 20071002
  Transmission Date: 20080405
  Serious: No
  Sender: FDA-Public Use
  Company Number: US-BOEHRINGER INGELHEIM PHARMACEUTICALS, INC.-2007-BP-22075BP

PATIENT
  Sex: Female

DRUGS (4)
  1. CLONIDINE HCL [Suspect]
     Indication: HYPERTENSION
  2. LISINOPRIL [Concomitant]
  3. VERAPAMIL [Concomitant]
  4. TENORMIN [Concomitant]

REACTIONS (1)
  - HYPERTENSION [None]
